FAERS Safety Report 18579091 (Version 1)
Quarter: 2020Q4

REPORT INFORMATION
  Report Type: Spontaneous
  Country: US (occurrence: US)
  Receive Date: 20201202
  Receipt Date: 20201202
  Transmission Date: 20210114
  Serious: Yes (Hospitalization)
  Sender: FDA-Public Use
  Company Number: None

PATIENT
  Age: 46 Year
  Sex: Male

DRUGS (1)
  1. AZITHROMYCIN (AZITHROMYCIN 250MG CAP, PKT 6) [Suspect]
     Active Substance: AZITHROMYCIN
     Indication: PAIN
     Dosage: OTHER FREQUENCY:UD;?
     Route: 048
     Dates: start: 20171214

REACTIONS (1)
  - Pancreatitis [None]

NARRATIVE: CASE EVENT DATE: 20171214
